FAERS Safety Report 5628743-2 (Version None)
Quarter: 2008Q1

REPORT INFORMATION
  Report Type: 
  Country: None (occurrence: None)
  Receive Date: 20080215
  Receipt Date: 20080208
  Transmission Date: 20080703
  Serious: Yes (Other)
  Sender: FDA-Public Use
  Company Number: US-GENENTECH-255970

PATIENT
  Age: 78 Year
  Sex: Male

DRUGS (2)
  1. AVASTIN [Suspect]
     Indication: MACULAR DEGENERATION
     Route: 031
  2. AVASTIN [Suspect]
     Indication: RETINAL HAEMORRHAGE

REACTIONS (1)
  - VITRITIS [None]
